FAERS Safety Report 9779907 (Version 1)
Quarter: 2013Q4

REPORT INFORMATION
  Report Type: Spontaneous
  Country: US (occurrence: US)
  Receive Date: 20131223
  Receipt Date: 20131223
  Transmission Date: 20140711
  Serious: No
  Sender: FDA-Public Use
  Company Number: US-PFIZER INC-2013366424

PATIENT
  Age: 73 Year
  Sex: Female
  Weight: 63.49 kg

DRUGS (1)
  1. GABAPENTIN [Suspect]
     Indication: SJOGREN^S SYNDROME
     Dosage: 900 MG, DAILY
     Route: 048
     Dates: start: 2013

REACTIONS (2)
  - Off label use [Unknown]
  - Drug ineffective for unapproved indication [Unknown]
